FAERS Safety Report 12594885 (Version 2)
Quarter: 2016Q4

REPORT INFORMATION
  Report Type: Spontaneous
  Country: JP (occurrence: JP)
  Receive Date: 20160726
  Receipt Date: 20161213
  Transmission Date: 20170207
  Serious: Yes (Other)
  Sender: FDA-Public Use
  Company Number: JP-PFIZER INC-2016346751

PATIENT
  Age: 62 Year
  Sex: Male
  Weight: 52 kg

DRUGS (2)
  1. INLYTA [Suspect]
     Active Substance: AXITINIB
     Dosage: 4 MG, 2X/DAY
     Route: 048
     Dates: start: 20161104
  2. INLYTA [Suspect]
     Active Substance: AXITINIB
     Indication: RENAL CANCER
     Dosage: 3 MG, 2X/DAY
     Route: 048
     Dates: start: 20161014, end: 20161103

REACTIONS (5)
  - Neoplasm progression [Unknown]
  - Renal impairment [Not Recovered/Not Resolved]
  - Condition aggravated [Unknown]
  - Disease recurrence [Not Recovered/Not Resolved]
  - Renal failure [Unknown]
